FAERS Safety Report 5083831-7 (Version None)
Quarter: 2006Q3

REPORT INFORMATION
  Report Type: 
  Country: None (occurrence: None)
  Receive Date: 20060818
  Receipt Date: 20060808
  Transmission Date: 20061208
  Serious: Yes (Hospitalization, Other)
  Sender: FDA-Public Use
  Company Number: US-JNJFOC-20060701863

PATIENT
  Sex: Female

DRUGS (17)
  1. DURAGESIC-100 [Suspect]
     Indication: PAIN
  2. LAMICTAL [Concomitant]
     Dosage: TAKEN QHS
  3. WELLBUTRIN XL [Concomitant]
  4. SEROQUEL [Concomitant]
  5. KLONOPIN [Concomitant]
     Dosage: 0.5MG AM AND 1MG PM
  6. XANAX [Concomitant]
     Dosage: TAKEN PRN
  7. ZANAFLEX [Concomitant]
     Dosage: 4MG TABLETS - 1.5 TAB TAKEN AM, 2 TAB TAKEN PM
  8. NAPRELAN [Concomitant]
     Dosage: 2 375MG TABLETS TAKEN PM
  9. ENDOCET [Concomitant]
     Dosage: 10/650 TAKEN PRN
  10. PHENERGAN HCL [Concomitant]
  11. PREVACID [Concomitant]
  12. VITAMIN B-12 [Concomitant]
  13. M.V.I. [Concomitant]
  14. CALCIUM GLUCONATE [Concomitant]
  15. ESTER C VITAMIN [Concomitant]
  16. VITAMIN E [Concomitant]
  17. AMBIEN [Concomitant]
     Dosage: TAKEN AT NIGHT

REACTIONS (2)
  - DEVICE LEAKAGE [None]
  - OVERDOSE [None]
